FAERS Safety Report 17551683 (Version 1)
Quarter: 2020Q1

REPORT INFORMATION
  Report Type: Spontaneous
  Country: GB (occurrence: GB)
  Receive Date: 20200317
  Receipt Date: 20200317
  Transmission Date: 20200409
  Serious: Yes (Other)
  Sender: FDA-Public Use
  Company Number: GB-PFIZER INC-2020111654

PATIENT
  Age: 57 Year
  Sex: Male

DRUGS (1)
  1. KETAMINE HCL [Suspect]
     Active Substance: KETAMINE HYDROCHLORIDE
     Dosage: UNK
     Route: 042

REACTIONS (4)
  - Mydriasis [Unknown]
  - Dizziness [Unknown]
  - Euphoric mood [Unknown]
  - Respiratory rate increased [Unknown]
